FAERS Safety Report 14945495 (Version 3)
Quarter: 2018Q3

REPORT INFORMATION
  Report Type: Spontaneous
  Country: FR (occurrence: FR)
  Receive Date: 20180529
  Receipt Date: 20180912
  Transmission Date: 20181010
  Serious: Yes (Other)
  Sender: FDA-Public Use
  Company Number: FR-AUROBINDO-AUR-APL-2018-026888

PATIENT
  Age: 81 Year
  Sex: Female
  Weight: 66 kg

DRUGS (1)
  1. LEVOFLOXACINE ARROW FILM?COATED TABLETS 500MG [Suspect]
     Active Substance: LEVOFLOXACIN
     Indication: MEDIASTINITIS
     Dosage: UNK
     Route: 048
     Dates: start: 20180416, end: 20180502

REACTIONS (1)
  - Toxic skin eruption [Recovered/Resolved]

NARRATIVE: CASE EVENT DATE: 20180427
